FAERS Safety Report 17501648 (Version 1)
Quarter: 2020Q1

REPORT INFORMATION
  Report Type: Spontaneous
  Country: US (occurrence: US)
  Receive Date: 20200224
  Receipt Date: 20200224
  Transmission Date: 20200409
  Serious: No
  Sender: FDA-Public Use
  Company Number: None

PATIENT
  Age: 44 Year
  Sex: Female

DRUGS (11)
  1. ALPRAZOLAM. [Concomitant]
     Active Substance: ALPRAZOLAM
  2. FENTANYL. [Concomitant]
     Active Substance: FENTANYL
  3. CYCLOBENZAPR [Concomitant]
     Active Substance: CYCLOBENZAPRINE
  4. GABAPENTIN. [Concomitant]
     Active Substance: GABAPENTIN
  5. LIDO/PRILOCN [Concomitant]
  6. DEXAMETHASONE. [Concomitant]
     Active Substance: DEXAMETHASONE
  7. DIPHEN/ATROP [Concomitant]
     Active Substance: ATROPINE SULFATE\DIPHENOXYLATE
  8. LEVOFLOXACIN. [Concomitant]
     Active Substance: LEVOFLOXACIN
  9. CAPECITABINE 500MG TAB [Suspect]
     Active Substance: CAPECITABINE
     Indication: RECTAL CANCER
     Dosage: ?          OTHER FREQUENCY:QAM - QPM;?
     Route: 048
     Dates: start: 20170822
  10. ESZOPICLONE. [Concomitant]
     Active Substance: ESZOPICLONE
  11. HYDROCO/APAP [Concomitant]
     Active Substance: ACETAMINOPHEN\HYDROCODONE

REACTIONS (1)
  - Surgery [None]

NARRATIVE: CASE EVENT DATE: 20200221
